FAERS Safety Report 8247098-0 (Version None)
Quarter: 2012Q1

REPORT INFORMATION
  Report Type: 
  Country: None (occurrence: None)
  Receive Date: 20120329
  Receipt Date: 20120329
  Transmission Date: 20120608
  Serious: Yes (Hospitalization)
  Sender: FDA-Public Use
  Company Number: None

PATIENT
  Age: 91 Year
  Sex: Male
  Weight: 76.8 kg

DRUGS (27)
  1. ASPIRIN [Suspect]
     Indication: ACUTE MYOCARDIAL INFARCTION
     Dosage: 81 MG DAILY PO CHRONIC
     Route: 048
  2. CALCIUM CARBONATE [Concomitant]
  3. LOVASTATIN [Concomitant]
  4. VIT D + C [Concomitant]
  5. SYNTHROID [Concomitant]
  6. PHENERGAN HCL [Concomitant]
  7. MESTINON [Concomitant]
  8. PROZAC [Concomitant]
  9. FERROUS SULFATE TAB [Concomitant]
  10. ALLOPURINOL [Concomitant]
  11. RAZADYNE ER [Concomitant]
  12. POTASSIUM CL [Concomitant]
  13. SULFATE [Concomitant]
  14. GLIMEPIRIDE [Concomitant]
  15. DILTIAZEM HCL [Concomitant]
  16. CLARITIN [Concomitant]
  17. VITAMIN B-12 [Concomitant]
  18. PREDNISONE TAB [Concomitant]
  19. GABAPENTIN [Concomitant]
  20. VASOTEC [Concomitant]
  21. VITAMIN D [Concomitant]
  22. NITROGLYCERIN [Concomitant]
  23. ZOFRAN [Concomitant]
  24. MYCOPHENOLATE MOFETIL (CELLCEPT) [Concomitant]
  25. PRILOSEC [Concomitant]
  26. PROSCAR [Concomitant]
  27. IMDUR [Suspect]

REACTIONS (2)
  - UPPER GASTROINTESTINAL HAEMORRHAGE [None]
  - HAEMORRHAGIC ARTERIOVENOUS MALFORMATION [None]
